FAERS Safety Report 6317692-2 (Version None)
Quarter: 2009Q3

REPORT INFORMATION
  Report Type: 
  Country: None (occurrence: None)
  Receive Date: 20090821
  Receipt Date: 20090811
  Transmission Date: 20100115
  Serious: Yes (Other)
  Sender: FDA-Public Use
  Company Number: PHHY2009FR33647

PATIENT
  Sex: Female

DRUGS (3)
  1. FEMARA [Suspect]
     Indication: BREAST CANCER
     Dosage: 2.5 MG/DAY
     Dates: end: 20090601
  2. AROMASIN [Concomitant]
     Dosage: UNK
     Dates: start: 20090701
  3. HORMONES [Concomitant]
     Dosage: UNK
     Dates: start: 20090701

REACTIONS (5)
  - ABDOMINAL PAIN UPPER [None]
  - ARTHRALGIA [None]
  - BRONCHIAL IRRITATION [None]
  - CHEST DISCOMFORT [None]
  - DYSPNOEA [None]
